FAERS Safety Report 5973725-4 (Version None)
Quarter: 2008Q4

REPORT INFORMATION
  Report Type: 
  Country: None (occurrence: None)
  Receive Date: 20081201
  Receipt Date: 20080118
  Transmission Date: 20090506
  Serious: No
  Sender: FDA-Public Use
  Company Number: US-AMGEN-KDL261344

PATIENT
  Sex: Male

DRUGS (1)
  1. ENBREL [Suspect]
     Indication: PSORIASIS
     Dates: start: 20050317

REACTIONS (5)
  - BLOOD BLISTER [None]
  - CONTUSION [None]
  - HAEMANGIOMA [None]
  - RASH PAPULAR [None]
  - VEIN DISORDER [None]
